FAERS Safety Report 12402678 (Version 1)
Quarter: 2016Q2

REPORT INFORMATION
  Report Type: Spontaneous
  Country: US (occurrence: US)
  Receive Date: 20160525
  Receipt Date: 20160525
  Transmission Date: 20160815
  Serious: Yes (Other)
  Sender: FDA-Public Use
  Company Number: US-TEVA-587761USA

PATIENT
  Sex: Female

DRUGS (3)
  1. ASPIRIN. [Suspect]
     Active Substance: ASPIRIN
     Dosage: 325 MILLIGRAM DAILY;
     Route: 048
  2. CLOPIDOGREL [Suspect]
     Active Substance: CLOPIDOGREL BISULFATE
     Dosage: 1/2 TAB MON-WED-FRI
     Route: 048
     Dates: start: 20150731
  3. CLOPIDOGREL [Suspect]
     Active Substance: CLOPIDOGREL BISULFATE
     Dosage: 37.5 MILLIGRAM DAILY; 1/2 TAB DAILY
     Route: 048
     Dates: end: 20150729

REACTIONS (3)
  - Therapeutic response increased [Unknown]
  - Product measured potency issue [Unknown]
  - Rectal haemorrhage [Unknown]
